FAERS Safety Report 4566408-9 (Version None)
Quarter: 2005Q1

REPORT INFORMATION
  Report Type: 
  Country: None (occurrence: None)
  Receive Date: 20050128
  Receipt Date: 20050111
  Transmission Date: 20050727
  Serious: Yes (Death)
  Sender: FDA-Public Use
  Company Number: 200510177BCC

PATIENT
  Age: 40 Year
  Sex: Female
  Weight: 77.1115 kg

DRUGS (1)
  1. ALEVE [Suspect]
     Indication: ARTHRALGIA
     Dosage: 220 MG, BID, ORAL
     Route: 048
     Dates: end: 20041108

REACTIONS (8)
  - ARTHRALGIA [None]
  - BRAIN DEATH [None]
  - CARDIAC ARREST [None]
  - FALL [None]
  - INFLUENZA [None]
  - INTRACRANIAL ANEURYSM [None]
  - PAIN IN EXTREMITY [None]
  - VOMITING [None]
